FAERS Safety Report 9423098 (Version 1)
Quarter: 2013Q3

REPORT INFORMATION
  Report Type: Spontaneous
  Country: US (occurrence: US)
  Receive Date: 20130726
  Receipt Date: 20130726
  Transmission Date: 20140515
  Serious: Yes (Other)
  Sender: FDA-Public Use
  Company Number: US-JNJFOC-20130712113

PATIENT
  Sex: Male

DRUGS (1)
  1. HALDOL DECANOATE [Suspect]
     Indication: PRODUCT USED FOR UNKNOWN INDICATION
     Route: 065

REACTIONS (3)
  - Sedation [Unknown]
  - Craniocerebral injury [Unknown]
  - Adverse drug reaction [Unknown]
